FAERS Safety Report 11875074 (Version 1)
Quarter: 2015Q4

REPORT INFORMATION
  Report Type: Spontaneous
  Country: PT (occurrence: PT)
  Receive Date: 20151229
  Receipt Date: 20151229
  Transmission Date: 20160305
  Serious: Yes (Other)
  Sender: FDA-Public Use
  Company Number: PT-ACTAVIS-2015-28571

PATIENT
  Age: 69 Year
  Sex: Female
  Weight: 103 kg

DRUGS (4)
  1. ONDANSETROM                        /00955301/ [Concomitant]
     Indication: PRODUCT USED FOR UNKNOWN INDICATION
     Dosage: 8 MG, 1/ THREE WEEKS (PR?-MEDICA??O - PREMEDICATION)
     Route: 042
     Dates: start: 20151207, end: 20151207
  2. PREDNISOLONA                       /00016201/ [Concomitant]
     Indication: PRODUCT USED FOR UNKNOWN INDICATION
     Dosage: 120 MG, 1/ THREE WEEKS (PR?-MEDICA??O - PREMEDICATION)
     Route: 048
     Dates: start: 20151206, end: 20151207
  3. DOCETAXEL ACTAVIS [Suspect]
     Active Substance: DOCETAXEL
     Indication: BREAST CANCER
     Dosage: 200 MG, 1/ THREE WEEKS
     Route: 042
     Dates: start: 20151207, end: 20151207
  4. DEXAMETASONA                       /00016001/ [Concomitant]
     Indication: PRODUCT USED FOR UNKNOWN INDICATION
     Dosage: 20 MG, 1/ THREE WEEKS (PR?-MEDICA??O - PREMEDICATION)
     Route: 042
     Dates: start: 20151207, end: 20151207

REACTIONS (4)
  - Rash [Recovered/Resolved]
  - Dyspnoea [Recovered/Resolved]
  - Hypersensitivity [Recovered/Resolved]
  - Abdominal discomfort [Recovered/Resolved]

NARRATIVE: CASE EVENT DATE: 20151207
